FAERS Safety Report 21054786 (Version 4)
Quarter: 2022Q3

REPORT INFORMATION
  Report Type: Spontaneous
  Country: JP (occurrence: JP)
  Receive Date: 20220707
  Receipt Date: 20220816
  Transmission Date: 20221027
  Serious: Yes (Hospitalization, Other)
  Sender: FDA-Public Use
  Company Number: JP-JAZZ-2022-JP-022604

PATIENT
  Age: 18 Year
  Sex: Male
  Weight: 55.4 kg

DRUGS (2)
  1. DEFITELIO [Suspect]
     Active Substance: DEFIBROTIDE SODIUM
     Indication: Venoocclusive liver disease
     Dosage: 25 MILLIGRAM/KILOGRAM/ 24 HOURS, QD
     Route: 042
     Dates: start: 20220613
  2. INOVAN [DOPAMINE HYDROCHLORIDE] [Concomitant]
     Dosage: UNK

REACTIONS (6)
  - Herpes virus infection [Recovering/Resolving]
  - Myelitis [Recovering/Resolving]
  - Meningitis [Recovering/Resolving]
  - Cystitis haemorrhagic [Recovering/Resolving]
  - Haematuria [Recovering/Resolving]
  - Urinary tract pain [Recovering/Resolving]

NARRATIVE: CASE EVENT DATE: 20220601
